FAERS Safety Report 13456166 (Version 1)
Quarter: 2017Q2

REPORT INFORMATION
  Report Type: Spontaneous
  Country: US (occurrence: US)
  Receive Date: 20170419
  Receipt Date: 20170419
  Transmission Date: 20170830
  Serious: No
  Sender: FDA-Public Use
  Company Number: None

PATIENT
  Age: 43 Year
  Sex: Male
  Weight: 70.31 kg

DRUGS (4)
  1. TYLENOL REGULAR STRENGTH [Suspect]
     Active Substance: ACETAMINOPHEN
     Indication: MIGRAINE
     Dosage: QUANTITY:90 LIQUID PILLS?
     Route: 048
     Dates: start: 201703, end: 201703
  2. VENTOLIN HFA [Concomitant]
     Active Substance: ALBUTEROL SULFATE
  3. ASTHMA INHALER [Concomitant]
     Active Substance: UNSPECIFIED INGREDIENT
  4. ASMANEX [Concomitant]
     Active Substance: MOMETASONE FUROATE

REACTIONS (2)
  - Urticaria [None]
  - Erythema [None]

NARRATIVE: CASE EVENT DATE: 20170320
